FAERS Safety Report 4543078-7 (Version None)
Quarter: 2004Q4

REPORT INFORMATION
  Report Type: 
  Country: None (occurrence: None)
  Receive Date: 20041229
  Receipt Date: 20041213
  Transmission Date: 20050328
  Serious: Yes (Disabling)
  Sender: FDA-Public Use
  Company Number: 8007210

PATIENT
  Age: 31 Year
  Sex: Female
  Weight: 55 kg

DRUGS (6)
  1. KEPPRA [Suspect]
     Indication: NEUROPATHIC PAIN
     Dosage: 1500 MG /D PO
     Route: 048
     Dates: start: 20030101, end: 20040101
  2. KEPPRA [Suspect]
     Indication: NEUROPATHIC PAIN
     Dosage: 2000 MG /D PO
     Route: 048
     Dates: start: 20040701
  3. AMITRIPTYLINE HCL [Suspect]
     Indication: NEUROPATHIC PAIN
     Dosage: 50 MG 1/D PO
     Route: 048
     Dates: start: 20010101
  4. LAMICTAL [Suspect]
     Indication: NEUROPATHIC PAIN
     Dosage: 100 MG 2/D PO
     Route: 048
     Dates: start: 20020101
  5. NORSET [Suspect]
     Indication: DYSTHYMIC DISORDER
     Dosage: 1 DF 1/D PO
     Route: 048
     Dates: start: 20020101, end: 20020101
  6. KETAMINE HCL [Concomitant]

REACTIONS (5)
  - FATIGUE [None]
  - HYPERSOMNIA [None]
  - NEUROPATHIC PAIN [None]
  - PAIN EXACERBATED [None]
  - SLEEP STUDY ABNORMAL [None]
